FAERS Safety Report 9180091 (Version 1)
Quarter: 2012Q4

REPORT INFORMATION
  Report Type: 
  Country: US (occurrence: US)
  Receive Date: 20121029
  Receipt Date: 20121029
  Transmission Date: 20130627
  Serious: Yes (Other)
  Sender: FDA-Public Use
  Company Number: US-BAYER-2012-110446

PATIENT
  Age: 19 Year
  Sex: Female

DRUGS (2)
  1. NEXAVAR [Suspect]
     Indication: LIVER, CANCER OF
     Dosage: 400 mg, BID
     Route: 048
     Dates: start: 20120917, end: 20121008
  2. NEXAVAR [Suspect]
     Indication: LIVER, CANCER OF
     Dosage: 200 mg, QD
     Route: 048
     Dates: start: 20121017

REACTIONS (3)
  - Rash [Recovered/Resolved]
  - Gait disturbance [Recovered/Resolved]
  - Blood pressure increased [Recovered/Resolved]
